FAERS Safety Report 25143346 (Version 3)
Quarter: 2025Q2

REPORT INFORMATION
  Report Type: Spontaneous
  Country: CA (occurrence: CA)
  Receive Date: 20250401
  Receipt Date: 20250406
  Transmission Date: 20250716
  Serious: Yes (Hospitalization, Other)
  Sender: JAZZ
  Company Number: CA-JAZZ PHARMACEUTICALS-2025-CA-008156

PATIENT
  Age: 15 Year
  Sex: Male

DRUGS (1)
  1. DEFITELIO [Suspect]
     Active Substance: DEFIBROTIDE SODIUM
     Indication: Prophylaxis
     Dates: end: 20250329

REACTIONS (6)
  - Systemic inflammatory response syndrome [Unknown]
  - Retinal haemorrhage [Unknown]
  - Pneumonia [Unknown]
  - Haemophagocytic lymphohistiocytosis [Unknown]
  - Gastrointestinal haemorrhage [Unknown]
  - Off label use [Unknown]
